FAERS Safety Report 11925270 (Version 1)
Quarter: 2016Q1

REPORT INFORMATION
  Report Type: Spontaneous
  Country: CN (occurrence: CN)
  Receive Date: 20160118
  Receipt Date: 20160118
  Transmission Date: 20160526
  Serious: Yes (Other)
  Sender: FDA-Public Use
  Company Number: CN-EISAI MEDICAL RESEARCH-EC-2016-013627

PATIENT
  Age: 87 Year
  Sex: Female
  Weight: 46 kg

DRUGS (1)
  1. ARICEPT [Suspect]
     Active Substance: DONEPEZIL HYDROCHLORIDE
     Indication: VASCULAR DEMENTIA
     Route: 048
     Dates: start: 20150429, end: 20150615

REACTIONS (2)
  - Atrioventricular block complete [Recovering/Resolving]
  - Arrhythmia [Recovering/Resolving]

NARRATIVE: CASE EVENT DATE: 20150613
